FAERS Safety Report 6439362-2 (Version None)
Quarter: 2009Q4

REPORT INFORMATION
  Report Type: 
  Country: None (occurrence: None)
  Receive Date: 20091111
  Receipt Date: 20091111
  Transmission Date: 20100525
  Serious: Yes (Death, Hospitalization)
  Sender: FDA-Public Use
  Company Number: None

PATIENT
  Sex: Female
  Weight: 87.5442 kg

DRUGS (1)
  1. GEMZAR [Suspect]
     Indication: NON-SMALL CELL LUNG CANCER
     Dosage: 2184 MG WEEKLY IV DRIP
     Route: 041
     Dates: start: 20091103, end: 20091103

REACTIONS (3)
  - FATIGUE [None]
  - PNEUMONIA [None]
  - RESPIRATORY FAILURE [None]
